FAERS Safety Report 16228942 (Version 1)
Quarter: 2019Q2

REPORT INFORMATION
  Report Type: Spontaneous
  Country: US (occurrence: US)
  Receive Date: 20190319
  Receipt Date: 20190319
  Transmission Date: 20190711
  Serious: No
  Sender: FDA-Public Use
  Company Number: None

PATIENT
  Age: 54 Year
  Sex: Male

DRUGS (2)
  1. LISINOPRIL. [Suspect]
     Active Substance: LISINOPRIL
     Indication: HYPERTENSION
     Dosage: ?          OTHER DOSE:2.5MG;?
     Route: 048
     Dates: start: 20181130, end: 20190306
  2. EMPAGLIFLOZIN [Suspect]
     Active Substance: EMPAGLIFLOZIN
     Indication: DIABETES MELLITUS
     Dosage: ?          OTHER FREQUENCY:AM;?
     Route: 048
     Dates: start: 20190118, end: 20190312

REACTIONS (3)
  - Glomerulonephritis [None]
  - Vasculitis necrotising [None]
  - Haematuria [None]

NARRATIVE: CASE EVENT DATE: 20190306
